FAERS Safety Report 7826534-5 (Version None)
Quarter: 2011Q4

REPORT INFORMATION
  Report Type: 
  Country: None (occurrence: None)
  Receive Date: 20111017
  Receipt Date: 20091208
  Transmission Date: 20120403
  Serious: No
  Sender: FDA-Public Use
  Company Number: 2009021659

PATIENT
  Sex: Male
  Weight: 79 kg

DRUGS (1)
  1. CYTOGAM [Suspect]
     Indication: ANTIVIRAL PROPHYLAXIS
     Dosage: (7500 MG, 7500 MG EVERY 6 WEEKS INTRAVENOUS (NOT OTHERWISE SPECIFIED))
     Route: 042
     Dates: start: 19990101

REACTIONS (5)
  - CHEST PAIN [None]
  - FLUSHING [None]
  - INFUSION RELATED REACTION [None]
  - FEELING HOT [None]
  - ABDOMINAL PAIN LOWER [None]
